FAERS Safety Report 5537595-0 (Version None)
Quarter: 2007Q4

REPORT INFORMATION
  Report Type: 
  Country: None (occurrence: None)
  Receive Date: 20071207
  Receipt Date: 20071126
  Transmission Date: 20080405
  Serious: Yes (Death)
  Sender: FDA-Public Use
  Company Number: TW-AVENTIS-200721049GDDC

PATIENT
  Age: 69 Year
  Sex: Female
  Weight: 77.5 kg

DRUGS (2)
  1. LANTUS [Suspect]
     Route: 058
     Dates: start: 20070903
  2. GLIMEPIRIDE [Concomitant]
     Route: 048
     Dates: start: 20070903

REACTIONS (4)
  - COMA [None]
  - PRURITUS [None]
  - RASH [None]
  - RENAL FAILURE [None]
